FAERS Safety Report 10307821 (Version 1)
Quarter: 2014Q3

REPORT INFORMATION
  Report Type: Spontaneous
  Country: US (occurrence: None)
  Receive Date: 20140714
  Receipt Date: 20140714
  Transmission Date: 20150326
  Serious: Yes (Hospitalization)
  Sender: FDA-Public Use
  Company Number: None

PATIENT
  Age: 60 Year
  Sex: Female

DRUGS (1)
  1. AUGMENTIN [Suspect]
     Active Substance: AMOXICILLIN\CLAVULANATE POTASSIUM
     Indication: CELLULITIS
     Dates: start: 20130517, end: 20130526

REACTIONS (10)
  - Fatigue [None]
  - Hepatic steatosis [None]
  - Pruritus [None]
  - Blood alkaline phosphatase increased [None]
  - Alanine aminotransferase increased [None]
  - Aspartate aminotransferase increased [None]
  - Drug-induced liver injury [None]
  - Jaundice [None]
  - Blood bilirubin increased [None]
  - Pyrexia [None]

NARRATIVE: CASE EVENT DATE: 20130602
